FAERS Safety Report 11558172 (Version 2)
Quarter: 2016Q1

REPORT INFORMATION
  Report Type: Spontaneous
  Country: FR (occurrence: FR)
  Receive Date: 20150928
  Receipt Date: 20160201
  Transmission Date: 20160525
  Serious: Yes (Other)
  Sender: FDA-Public Use
  Company Number: FR-BEH-2015054092

PATIENT
  Age: 47 Year
  Sex: Female

DRUGS (10)
  1. SERETIDE [Suspect]
     Active Substance: FLUTICASONE FUROATE\SALMETEROL XINAFOATE
     Indication: ASTHMA
  2. ALVESCO [Suspect]
     Active Substance: CICLESONIDE
     Indication: ASTHMA
  3. TOPALGIC [Suspect]
     Active Substance: TRAMADOL
     Indication: BACK PAIN
  4. OMALIZUMAB (XOLAIR) [Concomitant]
     Indication: ASTHMA
     Dosage: START DATE ??-JAN-2014
  5. HIZENTRA [Suspect]
     Active Substance: HUMAN IMMUNOGLOBULIN G
     Indication: IMMUNODEFICIENCY COMMON VARIABLE
     Dosage: START DATE ??-APR-2015
     Route: 058
  6. VOLTAREN [Suspect]
     Active Substance: DICLOFENAC SODIUM
     Indication: BACK PAIN
  7. SINGULAIR [Concomitant]
     Active Substance: MONTELUKAST SODIUM
     Indication: ASTHMA
  8. INEXIUM [Concomitant]
     Active Substance: ESOMEPRAZOLE
     Indication: IRON DEFICIENCY ANAEMIA
  9. INEXIUM [Concomitant]
     Active Substance: ESOMEPRAZOLE
     Indication: GASTRITIS EROSIVE
  10. INEXIUM [Concomitant]
     Active Substance: ESOMEPRAZOLE
     Indication: MENORRHAGIA

REACTIONS (6)
  - Gastric ulcer [None]
  - Muscle spasms [Unknown]
  - Neuralgia [Unknown]
  - Red blood cell count decreased [Unknown]
  - Back pain [Unknown]
  - Anaemia [Unknown]

NARRATIVE: CASE EVENT DATE: 201509
